FAERS Safety Report 4658578-9 (Version None)
Quarter: 2005Q2

REPORT INFORMATION
  Report Type: 
  Country: None (occurrence: None)
  Receive Date: 20050509
  Receipt Date: 20050425
  Transmission Date: 20051028
  Serious: Yes (Hospitalization, Other)
  Sender: FDA-Public Use
  Company Number: 2002059274

PATIENT
  Age: 60 Year
  Sex: Male

DRUGS (10)
  1. ATORVASTATIN CALCIUM [Suspect]
     Indication: ILL-DEFINED DISORDER
     Dosage: 20 MG (DAILY), ORAL
     Route: 048
     Dates: end: 20010307
  2. DILTIAZEM [Suspect]
     Indication: ATRIAL FIBRILLATION
     Dosage: 360 MG (TWICE DAILY), ORAL
     Route: 048
     Dates: start: 20010201, end: 20010307
  3. NITROGLYCERIN [Suspect]
     Indication: ILL-DEFINED DISORDER
     Dosage: AS NEEDED, SUBLINGUAL
     Route: 060
     Dates: end: 20010307
  4. METOPROLOL TARTRATE [Suspect]
     Indication: ILL-DEFINED DISORDER
     Dosage: 200 MG (TWICE DAILY)
     Dates: end: 20010307
  5. BENAZEPRIL HCL [Suspect]
     Indication: ILL-DEFINED DISORDER
     Dosage: 40 MG (DAILY)
     Dates: end: 20010307
  6. WARFARIN SODIUM [Suspect]
     Indication: ILL-DEFINED DISORDER
     Dosage: 7.5 MG (DAILY)
     Dates: end: 20010307
  7. INSULIN 70/30 (INSULIN) [Concomitant]
  8. DIGOXIN [Concomitant]
  9. FUROSEMIDE [Concomitant]
  10. ASPIRIN [Concomitant]

REACTIONS (12)
  - ABDOMINAL PAIN [None]
  - BLOOD PHOSPHORUS INCREASED [None]
  - BLOOD SODIUM DECREASED [None]
  - COAGULOPATHY [None]
  - DYSPNOEA [None]
  - FATIGUE [None]
  - HEART RATE INCREASED [None]
  - HEPATITIS ACUTE [None]
  - INTERNATIONAL NORMALISED RATIO INCREASED [None]
  - PROTHROMBIN TIME PROLONGED [None]
  - RENAL FAILURE ACUTE [None]
  - RHABDOMYOLYSIS [None]
